FAERS Safety Report 9443213 (Version 1)
Quarter: 2013Q3

REPORT INFORMATION
  Report Type: Spontaneous
  Country: AU (occurrence: AU)
  Receive Date: 20130806
  Receipt Date: 20130806
  Transmission Date: 20140515
  Serious: Yes (Death, Other)
  Sender: FDA-Public Use
  Company Number: AU-BAYER-2013-094790

PATIENT
  Sex: Male

DRUGS (1)
  1. NEXAVAR 200 MG [Suspect]
     Indication: THYROID CANCER
     Dosage: UNK
     Dates: end: 2012

REACTIONS (3)
  - Death [Fatal]
  - Thyroid cancer [None]
  - Off label use [None]
